FAERS Safety Report 6045014-3 (Version None)
Quarter: 2009Q1

REPORT INFORMATION
  Report Type: 
  Country: None (occurrence: None)
  Receive Date: 20090116
  Receipt Date: 20090116
  Transmission Date: 20090719
  Serious: Yes (Other)
  Sender: FDA-Public Use
  Company Number: None

PATIENT
  Age: 55 Year
  Sex: Female
  Weight: 49.8957 kg

DRUGS (1)
  1. HALOPERIDOL 1MG MYL 1000 (MYLAN) 60 = QTY [Suspect]
     Dosage: TWICE A DAY THERES 31 LEFT I STOPPED IT

REACTIONS (12)
  - BLINDNESS [None]
  - DEATH OF RELATIVE [None]
  - DROOLING [None]
  - DRY MOUTH [None]
  - EMOTIONAL DISORDER [None]
  - ILL-DEFINED DISORDER [None]
  - MEMORY IMPAIRMENT [None]
  - MUSCLE SPASMS [None]
  - PALPITATIONS [None]
  - TREATMENT NONCOMPLIANCE [None]
  - TREMOR [None]
  - VOMITING [None]
